FAERS Safety Report 6650105-X (Version None)
Quarter: 2010Q1

REPORT INFORMATION
  Report Type: 
  Country: None (occurrence: None)
  Receive Date: 20100325
  Receipt Date: 20100121
  Transmission Date: 20100710
  Serious: No
  Sender: FDA-Public Use
  Company Number: US-KINGPHARMUSA00001-K201000082

PATIENT
  Age: 56 Year
  Sex: Male
  Weight: 102.49 kg

DRUGS (10)
  1. ALTACE [Suspect]
     Indication: HYPERTENSION
     Dosage: 2.5 MG, QD
     Dates: start: 20070101, end: 20091201
  2. ALTACE [Suspect]
     Dosage: 2.5 MG, QD
     Dates: start: 20100101, end: 20100119
  3. PLAVIX [Concomitant]
  4. BABY ASPIRIN [Concomitant]
  5. FISH OIL [Concomitant]
  6. MAGNESIUM [Concomitant]
  7. CALCIUM [Concomitant]
  8. SYNTHROID [Concomitant]
  9. CRESTOR [Concomitant]
  10. NIACIN [Concomitant]

REACTIONS (1)
  - TINNITUS [None]
